FAERS Safety Report 8512648 (Version 4)
Quarter: 2013Q3

REPORT INFORMATION
  Report Type: Spontaneous
  Country: US (occurrence: US)
  Receive Date: 20120413
  Receipt Date: 20130820
  Transmission Date: 20140515
  Serious: Yes (Other)
  Sender: FDA-Public Use
  Company Number: US-PFIZER INC-2012091757

PATIENT
  Age: 48 Year
  Sex: Female
  Weight: 82.54 kg

DRUGS (20)
  1. ZOLOFT [Suspect]
     Indication: DEPRESSION
     Dosage: UNK
  2. ZOLOFT [Suspect]
     Dosage: 100 MG DAILY
     Dates: start: 201011, end: 201201
  3. ZOLOFT [Suspect]
     Dosage: 150 MG, DAILY
     Dates: start: 201201, end: 2012
  4. LYRICA [Suspect]
     Indication: SLEEP DISORDER
     Dosage: 150 MG, DAILY
     Dates: start: 2011
  5. LYRICA [Suspect]
     Indication: NEUROPATHY PERIPHERAL
     Dosage: 50 MG, 3X/DAY
     Dates: start: 2011
  6. NEURONTIN [Suspect]
     Dosage: UNK
     Dates: start: 201011, end: 201012
  7. VALIUM [Suspect]
     Indication: SLEEP DISORDER
     Dosage: 5 MG, AS NEEDED (ONE TO TWO TABLETS)
  8. VALIUM [Suspect]
     Indication: PALPITATIONS
     Dosage: 5 MG, 3X/DAY
     Dates: start: 2012, end: 2012
  9. VALIUM [Suspect]
     Indication: ANXIETY
     Dosage: 5 MG DAILY
     Dates: start: 2012
  10. ABILIFY [Suspect]
     Dosage: 100 MG, UNK
  11. ULTRAM [Suspect]
     Indication: SLEEP DISORDER
     Dosage: 50 MG, AS NEEDED (1 OR 2 TABLETS EVERY 4 TO 6 HOURS)
  12. ULTRAM [Suspect]
     Indication: RESTLESS LEGS SYNDROME
  13. ULTRAM [Suspect]
     Indication: PAIN IN EXTREMITY
  14. VITAMIN A [Suspect]
     Indication: HYPOVITAMINOSIS
     Dosage: UNK, DAILY
  15. VITAMIN A [Suspect]
     Indication: EATING DISORDER
  16. VITAMIN D [Concomitant]
     Indication: EATING DISORDER
     Dosage: UNK
  17. VITAMIN B12 [Concomitant]
     Indication: EATING DISORDER
     Dosage: UNK
  18. VITAMIN E [Concomitant]
     Indication: EATING DISORDER
     Dosage: UNK
  19. VITAMIN C [Concomitant]
     Indication: EATING DISORDER
     Dosage: UNK
  20. VITAMIN B6 [Concomitant]
     Indication: EATING DISORDER
     Dosage: UNK

REACTIONS (16)
  - Loss of consciousness [Unknown]
  - Feeling abnormal [Recovered/Resolved]
  - Dizziness [Recovered/Resolved]
  - Tremor [Recovered/Resolved]
  - Nausea [Unknown]
  - Fall [Not Recovered/Not Resolved]
  - Drug ineffective [Unknown]
  - Vitamin B12 deficiency [Unknown]
  - Hypovitaminosis [Unknown]
  - Headache [Unknown]
  - Acne [Unknown]
  - Skin disorder [Unknown]
  - Pruritus generalised [Unknown]
  - Erythema [Unknown]
  - Fall [Unknown]
  - Somnolence [Not Recovered/Not Resolved]
